FAERS Safety Report 20950100 (Version 2)
Quarter: 2022Q2

REPORT INFORMATION
  Report Type: Spontaneous
  Country: JP (occurrence: JP)
  Receive Date: 20220613
  Receipt Date: 20220617
  Transmission Date: 20220721
  Serious: Yes (Other)
  Sender: FDA-Public Use
  Company Number: None

PATIENT
  Age: 67 Year
  Sex: Female

DRUGS (2)
  1. METHOTREXATE [Suspect]
     Active Substance: METHOTREXATE
     Indication: Rheumatoid arthritis
     Dosage: UNK
     Route: 065
  2. INFLIXIMAB [Suspect]
     Active Substance: INFLIXIMAB
     Indication: Rheumatoid arthritis
     Dosage: UNK
     Route: 065

REACTIONS (6)
  - Paraneoplastic pemphigus [Recovered/Resolved]
  - Autoimmune disorder [Recovered/Resolved]
  - Immunodeficiency [Recovered/Resolved]
  - Lymphoproliferative disorder [Recovered/Resolved]
  - Epstein-Barr virus infection [Unknown]
  - Atypical mycobacterial infection [Unknown]
